FAERS Safety Report 5480453-0 (Version None)
Quarter: 2007Q4

REPORT INFORMATION
  Report Type: 
  Country: None (occurrence: None)
  Receive Date: 20071009
  Receipt Date: 20071005
  Transmission Date: 20080405
  Serious: Yes (Disabling)
  Sender: FDA-Public Use
  Company Number: B0488025A

PATIENT
  Age: 92 Year
  Sex: Female
  Weight: 39 kg

DRUGS (1)
  1. ARIXTRA [Suspect]
     Indication: DRUG USE FOR UNKNOWN INDICATION
     Dosage: 2.5MG PER DAY
     Route: 058
     Dates: start: 20070907, end: 20070914

REACTIONS (2)
  - MONOPARESIS [None]
  - SUBDURAL HAEMATOMA [None]
